FAERS Safety Report 24553339 (Version 1)
Quarter: 2024Q4

REPORT INFORMATION
  Report Type: Spontaneous
  Country: FR (occurrence: FR)
  Receive Date: 20241028
  Receipt Date: 20241028
  Transmission Date: 20250115
  Serious: Yes (Life-Threatening)
  Sender: ROCHE
  Company Number: None

PATIENT
  Age: 42 Year
  Sex: Female

DRUGS (6)
  1. AVASTIN [Suspect]
     Active Substance: BEVACIZUMAB
     Indication: Breast cancer metastatic
     Dosage: STRENGTH: 25 MG/ML
     Route: 042
     Dates: start: 202305, end: 202307
  2. CARBOPLATIN [Suspect]
     Active Substance: CARBOPLATIN
     Indication: Triple negative breast cancer
     Dosage: 1 FOIS TOUTES LES 3 SEMAINES
     Route: 042
     Dates: start: 202204, end: 202207
  3. KEYTRUDA [Suspect]
     Active Substance: PEMBROLIZUMAB
     Indication: Triple negative breast cancer
     Route: 042
     Dates: start: 202207, end: 202305
  4. EPIRUBICIN [Suspect]
     Active Substance: EPIRUBICIN
     Indication: Triple negative breast cancer
     Dosage: 1 FOIS TOUTES LES 3 SEMAINES
     Route: 042
     Dates: start: 202207, end: 202211
  5. PACLITAXEL [Suspect]
     Active Substance: PACLITAXEL
     Indication: Product used for unknown indication
     Dosage: 1 FOIS PAR SEMAINE
     Route: 042
     Dates: start: 202204, end: 202207
  6. CYCLOPHOSPHAMIDE [Suspect]
     Active Substance: CYCLOPHOSPHAMIDE
     Indication: Triple negative breast cancer
     Dosage: 1 FOIS TOUTES LES 3 SEMAINES
     Route: 042
     Dates: start: 202207, end: 202211

REACTIONS (1)
  - B-cell type acute leukaemia [Not Recovered/Not Resolved]

NARRATIVE: CASE EVENT DATE: 20240801
